FAERS Safety Report 24315771 (Version 1)
Quarter: 2024Q3

REPORT INFORMATION
  Report Type: Spontaneous
  Country: US (occurrence: US)
  Receive Date: 20240913
  Receipt Date: 20240913
  Transmission Date: 20241016
  Serious: Yes (Death, Other)
  Sender: CHEPLAPHARM
  Company Number: US-ROCHE-10000072808

PATIENT
  Age: 59 Year
  Sex: Male
  Weight: 93 kg

DRUGS (3)
  1. CAPECITABINE [Suspect]
     Active Substance: CAPECITABINE
     Indication: Gallbladder cancer metastatic
  2. SORAFENIB [Suspect]
     Active Substance: SORAFENIB
     Indication: Gallbladder cancer metastatic
  3. OXALIPLATIN [Suspect]
     Active Substance: OXALIPLATIN
     Indication: Gallbladder cancer metastatic

REACTIONS (12)
  - Death [Fatal]
  - Ascites [Unknown]
  - Haematochezia [Unknown]
  - Acute kidney injury [Unknown]
  - Ileus [Unknown]
  - Aspiration [Unknown]
  - Neutropenia [Unknown]
  - Mental status changes [Unknown]
  - Abdominal pain [Unknown]
  - Malnutrition [Unknown]
  - Anaemia [Unknown]
  - Off label use [Unknown]

NARRATIVE: CASE EVENT DATE: 20091214
